FAERS Safety Report 18030495 (Version 1)
Quarter: 2020Q3

REPORT INFORMATION
  Report Type: Other
  Country: HR (occurrence: HR)
  Receive Date: 20200716
  Receipt Date: 20200716
  Transmission Date: 20201103
  Serious: Yes (Life-Threatening, Hospitalization, Other)
  Sender: FDA-Public Use
  Company Number: HR-ASTELLAS-2020US023552

PATIENT
  Age: 53 Year
  Sex: Female

DRUGS (1)
  1. XOSPATA [Suspect]
     Active Substance: GILTERITINIB
     Indication: ACUTE MYELOID LEUKAEMIA RECURRENT
     Route: 048
     Dates: start: 20200127, end: 20200601

REACTIONS (2)
  - Differentiation syndrome [Recovered/Resolved with Sequelae]
  - Neutrophilic dermatosis [Recovered/Resolved with Sequelae]

NARRATIVE: CASE EVENT DATE: 20200601
